FAERS Safety Report 9490382 (Version 1)
Quarter: 2013Q3

REPORT INFORMATION
  Report Type: Spontaneous
  Country: US (occurrence: US)
  Receive Date: 20130830
  Receipt Date: 20130830
  Transmission Date: 20140515
  Serious: Yes (Other)
  Sender: FDA-Public Use
  Company Number: US-AMGEN-USASP2013059925

PATIENT
  Age: 69 Year
  Sex: Female

DRUGS (7)
  1. PROLIA [Suspect]
     Indication: PRODUCT USED FOR UNKNOWN INDICATION
     Dosage: UNK
     Route: 065
  2. DIOVAN [Concomitant]
     Dosage: 160
  3. VITAMIN D                          /00107901/ [Concomitant]
  4. POTASSIUM CHLORIDE [Concomitant]
     Dosage: 8
  5. METOPROLOL [Concomitant]
     Dosage: 25
  6. MENEST                             /00073001/ [Concomitant]
     Dosage: 2.5
  7. RANITIDINE [Concomitant]

REACTIONS (7)
  - Intestinal resection [Unknown]
  - Hypertension [Unknown]
  - Diarrhoea [Unknown]
  - Constipation [Unknown]
  - Vomiting [Unknown]
  - Cough [Unknown]
  - Weight decreased [Unknown]
